FAERS Safety Report 7546868-1 (Version None)
Quarter: 2011Q2

REPORT INFORMATION
  Report Type: 
  Country: None (occurrence: None)
  Receive Date: 20110614
  Receipt Date: 20110603
  Transmission Date: 20111010
  Serious: Yes (Hospitalization)
  Sender: FDA-Public Use
  Company Number: US-JNJFOC-20110407053

PATIENT
  Sex: Male

DRUGS (17)
  1. PREDNISONE [Suspect]
     Indication: PROSTATE CANCER METASTATIC
     Route: 048
     Dates: start: 20101105
  2. ASPIRIN [Concomitant]
     Indication: CARDIAC DISORDER
     Route: 048
     Dates: start: 20080805
  3. METFORMIN HCL [Concomitant]
     Indication: DIABETES MELLITUS
     Route: 048
     Dates: start: 20080805
  4. NAPROXEN (ALEVE) [Concomitant]
     Indication: CANCER PAIN
     Route: 048
     Dates: start: 20100504
  5. BENAZEPRIL HYDROCHLORIDE [Concomitant]
     Indication: HYPERTENSION
     Route: 048
     Dates: start: 20101105
  6. ABIRATERONE ACETATE [Suspect]
     Indication: PROSTATE CANCER METASTATIC
     Route: 048
     Dates: start: 20101105, end: 20110322
  7. ACETAMINOPHEN [Concomitant]
     Indication: CANCER PAIN
     Route: 048
     Dates: start: 20100308
  8. AMLODIPINE BESYLATE AND BENAZEPRIL HCL [Concomitant]
     Indication: HYPERTENSION
     Route: 048
     Dates: start: 20110301
  9. CORTISONE ACETATE [Concomitant]
     Indication: ARTHRALGIA
     Route: 065
     Dates: start: 20110301, end: 20110301
  10. LEUPROLIDE ACETATE [Concomitant]
     Indication: ANTIANDROGEN THERAPY
     Route: 048
     Dates: start: 20090501
  11. SIMVASTATIN [Concomitant]
     Indication: HYPERCHOLESTEROLAEMIA
     Route: 048
     Dates: start: 20070626
  12. ABIRATERONE ACETATE [Suspect]
     Route: 048
     Dates: start: 20110405, end: 20110419
  13. PENICILLIN [Concomitant]
     Indication: TOOTH INFECTION
     Route: 048
     Dates: start: 20101101
  14. IBUPROFEN [Concomitant]
     Indication: PAIN
     Route: 048
     Dates: start: 20080909
  15. ZOLEDRONIC ACID [Concomitant]
     Indication: METASTASES TO BONE
     Route: 042
     Dates: start: 20070511
  16. AMLODIPINE BESYLATE [Concomitant]
     Indication: HYPERTENSION
     Route: 048
     Dates: start: 20110329
  17. PREDNISONE [Suspect]
     Route: 048
     Dates: start: 20090501

REACTIONS (1)
  - PLEURAL EFFUSION [None]
